FAERS Safety Report 4560094-X (Version None)
Quarter: 2005Q1

REPORT INFORMATION
  Report Type: 
  Country: None (occurrence: None)
  Receive Date: 20050120
  Receipt Date: 20050120
  Transmission Date: 20050727
  Serious: No
  Sender: FDA-Public Use
  Company Number: None

PATIENT
  Age: 41 Year
  Sex: Female
  Weight: 41 kg

DRUGS (2)
  1. WELLBUTRIN SR [Suspect]
     Dosage: 150 MG ONE QD
     Dates: start: 20010101
  2. NEURONTIN [Concomitant]

REACTIONS (1)
  - DIZZINESS [None]
